FAERS Safety Report 10480660 (Version 1)
Quarter: 2014Q3

REPORT INFORMATION
  Report Type: Spontaneous
  Country: JP (occurrence: JP)
  Receive Date: 20140929
  Receipt Date: 20140929
  Transmission Date: 20150326
  Serious: Yes (Death)
  Sender: FDA-Public Use
  Company Number: JP-MALLINCKRODT-T201403585

PATIENT
  Age: 45 Year
  Sex: Male
  Weight: 74.1 kg

DRUGS (9)
  1. METHADONE [Suspect]
     Active Substance: METHADONE HYDROCHLORIDE
     Dosage: 10 MG, (20 MG DAILY DOSE)
     Route: 048
     Dates: start: 20140519, end: 20140605
  2. REMERON [Concomitant]
     Active Substance: MIRTAZAPINE
     Dosage: 7.5 MG, UNK
     Route: 048
     Dates: start: 20140516, end: 20140604
  3. METHADONE [Suspect]
     Active Substance: METHADONE HYDROCHLORIDE
     Indication: CANCER PAIN
     Dosage: 10 MG, (30 MG DAILY DOSE)
     Route: 048
     Dates: start: 20140512, end: 20140519
  4. LYRICA [Concomitant]
     Active Substance: PREGABALIN
     Dosage: 450 MG, UNK
     Route: 048
     Dates: end: 20140604
  5. RINDERON                           /00008501/ [Concomitant]
     Dosage: 4 MG, UNK
     Route: 048
     Dates: start: 20140516, end: 20140522
  6. MAGNESIUM OXIDE. [Concomitant]
     Active Substance: MAGNESIUM OXIDE
     Dosage: 1.5 G, UNK
     Route: 048
     Dates: end: 20140604
  7. CYMBALTA [Concomitant]
     Active Substance: DULOXETINE HYDROCHLORIDE
     Dosage: 20 MG, UNK
     Route: 048
     Dates: end: 20140604
  8. OXINORM                            /00045603/ [Concomitant]
     Dosage: 10 MG, PRN
     Route: 048
     Dates: start: 20140514
  9. GABALON [Concomitant]
     Active Substance: BACLOFEN
     Dosage: 15 MG, UNK
     Route: 048
     Dates: end: 20140604

REACTIONS (1)
  - Neoplasm malignant [Fatal]
